FAERS Safety Report 21614674 (Version 60)
Quarter: 2025Q2

REPORT INFORMATION
  Report Type: Report from Study
  Country: CO (occurrence: CO)
  Receive Date: 20221118
  Receipt Date: 20250508
  Transmission Date: 20250716
  Serious: Yes (Death, Hospitalization, Other)
  Sender: TAKEDA
  Company Number: CO-TAKEDA-2022TUS079282

PATIENT
  Age: 65 Year
  Sex: Female
  Weight: 81 kg

DRUGS (6)
  1. TEDUGLUTIDE [Suspect]
     Active Substance: TEDUGLUTIDE
     Indication: Short-bowel syndrome
     Dosage: 3.5 MILLIGRAM, QD
     Dates: start: 20221007, end: 20230122
  2. TEDUGLUTIDE [Suspect]
     Active Substance: TEDUGLUTIDE
     Dosage: 3.5 MILLIGRAM, QD
  3. TEDUGLUTIDE [Suspect]
     Active Substance: TEDUGLUTIDE
     Dosage: 4 MILLIGRAM, QD
  4. TEDUGLUTIDE [Suspect]
     Active Substance: TEDUGLUTIDE
  5. TEDUGLUTIDE [Suspect]
     Active Substance: TEDUGLUTIDE
     Dosage: 3 MILLIGRAM, QD
  6. TEDUGLUTIDE [Suspect]
     Active Substance: TEDUGLUTIDE
     Dosage: 3 MILLIGRAM, QD
     Dates: end: 20250419

REACTIONS (46)
  - Death [Fatal]
  - Seizure [Recovering/Resolving]
  - Bradycardia [Recovering/Resolving]
  - Blood pressure decreased [Recovering/Resolving]
  - Pain [Recovering/Resolving]
  - Blood sodium decreased [Unknown]
  - Neuropathy peripheral [Unknown]
  - Muscular weakness [Not Recovered/Not Resolved]
  - Blood potassium decreased [Not Recovered/Not Resolved]
  - Speech disorder [Not Recovered/Not Resolved]
  - Tremor [Not Recovered/Not Resolved]
  - Blood magnesium decreased [Not Recovered/Not Resolved]
  - Hyperkalaemia [Unknown]
  - Kidney infection [Unknown]
  - Spinal disorder [Not Recovered/Not Resolved]
  - Fall [Unknown]
  - Bacteraemia [Recovering/Resolving]
  - Back injury [Unknown]
  - Bacterial infection [Recovering/Resolving]
  - Post procedural infection [Unknown]
  - Back pain [Not Recovered/Not Resolved]
  - Pyrexia [Recovering/Resolving]
  - Dysuria [Recovering/Resolving]
  - Oxygen saturation decreased [Unknown]
  - Somnolence [Unknown]
  - Blood creatinine increased [Unknown]
  - Device related infection [Unknown]
  - Intervertebral discitis [Unknown]
  - Feeling abnormal [Unknown]
  - Suicidal ideation [Unknown]
  - General physical health deterioration [Unknown]
  - Cardiac arrest [Unknown]
  - Abdominal pain [Recovering/Resolving]
  - Malaise [Unknown]
  - Urinary tract infection [Not Recovered/Not Resolved]
  - Hypokinesia [Unknown]
  - Weight decreased [Unknown]
  - Pain in extremity [Unknown]
  - Drug intolerance [Unknown]
  - Product packaging issue [Unknown]
  - Product quality issue [Unknown]
  - Product prescribing error [Unknown]
  - Incorrect dose administered [Unknown]
  - Product administration error [Unknown]
  - Product dose omission issue [Unknown]
  - Treatment noncompliance [Not Recovered/Not Resolved]

NARRATIVE: CASE EVENT DATE: 20221019
